FAERS Safety Report 5076215-9 (Version None)
Quarter: 2006Q3

REPORT INFORMATION
  Report Type: 
  Country: None (occurrence: None)
  Receive Date: 20060807
  Receipt Date: 20060724
  Transmission Date: 20061208
  Serious: Yes (Other)
  Sender: FDA-Public Use
  Company Number: US200607001285

PATIENT
  Age: 32 Year
  Sex: Female

DRUGS (1)
  1. CYMBALTA [Suspect]
     Indication: MAJOR DEPRESSION
     Dosage: 60 MG
     Dates: start: 20060101

REACTIONS (5)
  - ANAEMIA [None]
  - CONTUSION [None]
  - HYSTERECTOMY [None]
  - INFUSION SITE ABSCESS [None]
  - STAPHYLOCOCCAL INFECTION [None]
